FAERS Safety Report 5753820-5 (Version None)
Quarter: 2008Q2

REPORT INFORMATION
  Report Type: 
  Country: None (occurrence: None)
  Receive Date: 20080530
  Receipt Date: 20080520
  Transmission Date: 20081010
  Serious: Yes (Other)
  Sender: FDA-Public Use
  Company Number: US-MERCK-0805USA00169

PATIENT
  Age: 10 Year
  Sex: Male

DRUGS (4)
  1. SINGULAIR [Suspect]
     Indication: ASTHMA
     Route: 048
     Dates: start: 20050701, end: 20080409
  2. CLARINEX [Concomitant]
     Indication: RHINITIS ALLERGIC
     Route: 048
  3. PERIACTIN [Concomitant]
     Indication: RHINITIS ALLERGIC
     Route: 048
  4. FLONASE [Concomitant]
     Indication: RHINITIS ALLERGIC
     Route: 065

REACTIONS (4)
  - ABNORMAL BEHAVIOUR [None]
  - ANGER [None]
  - SELF-INJURIOUS IDEATION [None]
  - SUICIDAL IDEATION [None]
